FAERS Safety Report 6309978-2 (Version None)
Quarter: 2009Q3

REPORT INFORMATION
  Report Type: 
  Country: None (occurrence: None)
  Receive Date: 20090814
  Receipt Date: 20090807
  Transmission Date: 20100115
  Serious: Yes (Hospitalization)
  Sender: FDA-Public Use
  Company Number: FR-VALEANT-2009VX001422

PATIENT
  Age: 71 Year
  Sex: Male

DRUGS (1)
  1. MESTINON [Suspect]
     Indication: MYASTHENIA GRAVIS
     Route: 048

REACTIONS (6)
  - ACCIDENTAL OVERDOSE [None]
  - CONVULSION [None]
  - DIARRHOEA [None]
  - HYPERHIDROSIS [None]
  - HYPOTENSION [None]
  - SALIVARY HYPERSECRETION [None]
